FAERS Safety Report 25609450 (Version 2)
Quarter: 2025Q3

REPORT INFORMATION
  Report Type: Spontaneous
  Country: US (occurrence: US)
  Receive Date: 20250727
  Receipt Date: 20250729
  Transmission Date: 20251021
  Serious: Yes (Other)
  Sender: BAUSCH AND LOMB
  Company Number: US-BAUSCHBL-2025BNL012778

PATIENT
  Sex: Male

DRUGS (4)
  1. BLINK GEL TEARS [Suspect]
     Active Substance: POLYETHYLENE GLYCOL 400
     Indication: Product used for unknown indication
     Route: 065
  2. BLINK GEL TEARS [Suspect]
     Active Substance: POLYETHYLENE GLYCOL 400
  3. BLINK TEARS [Suspect]
     Active Substance: POLYETHYLENE GLYCOL 400
     Indication: Product used for unknown indication
     Route: 065
  4. BLINK TEARS [Suspect]
     Active Substance: POLYETHYLENE GLYCOL 400

REACTIONS (3)
  - Retinal detachment [Unknown]
  - Eye disorder [Unknown]
  - Eye discharge [Unknown]
